FAERS Safety Report 21932035 (Version 1)
Quarter: 2023Q1

REPORT INFORMATION
  Report Type: Spontaneous
  Country: CH (occurrence: CH)
  Receive Date: 20230131
  Receipt Date: 20230131
  Transmission Date: 20230418
  Serious: Yes (Other)
  Sender: FDA-Public Use
  Company Number: None

PATIENT
  Age: 28 Year
  Sex: Female

DRUGS (9)
  1. VIBRAMYCIN [Suspect]
     Active Substance: DOXYCYCLINE
     Indication: Hidradenitis
     Dosage: 50 MG, DAILY (FOR SEVERAL MONTHS)
     Route: 048
     Dates: start: 2022, end: 20221119
  2. CIPRALEX [Suspect]
     Active Substance: ESCITALOPRAM OXALATE
     Dosage: 20 MG, DAILY (FOR ABOUT A YEAR)
     Route: 048
     Dates: end: 20221129
  3. ERYTHROMYCIN [Suspect]
     Active Substance: ERYTHROMYCIN
     Indication: Acne
     Dosage: UNK
     Route: 062
     Dates: end: 20221119
  4. AMOXICILLIN [Suspect]
     Active Substance: AMOXICILLIN
     Dosage: 1 G, 3X/DAY (TAKEN FOR 1 WEEK )
     Route: 048
     Dates: start: 20221024, end: 20221028
  5. SACCHAROMYCES CEREVISIAE [Suspect]
     Active Substance: SACCHAROMYCES CEREVISIAE
     Dosage: 200 MG, DAILY (TAKEN FOR 1 WEEK)
     Route: 048
     Dates: start: 20221024, end: 20221028
  6. PHLOROGLUCINOL [Suspect]
     Active Substance: PHLOROGLUCINOL
     Dosage: 160 MG, 3X/DAY (FOR 5 DAYS)
     Route: 048
     Dates: start: 20221024, end: 20221028
  7. DAFALGAN [Suspect]
     Active Substance: ACETAMINOPHEN
     Dosage: 1 G, AS NEEDED (UP TO 4 TIMES A DAY DEPENDING ON PAIN IN RESERVE)
     Route: 048
     Dates: end: 20221119
  8. TRAMADOL [Suspect]
     Active Substance: TRAMADOL
     Dosage: UNK, AS NEEDED ( BETWEEN 10 AND 20 DROPS ACCORDING TO PAIN/IN RESERVE IF INTENSE PAIN)
     Route: 048
     Dates: end: 20221119
  9. ANDREAFOL [Concomitant]
     Dosage: 0.4 MG, DAILY
     Route: 048
     Dates: start: 20221116

REACTIONS (1)
  - Abortion spontaneous [Recovered/Resolved]

NARRATIVE: CASE EVENT DATE: 20221201
